FAERS Safety Report 4319514-8 (Version None)
Quarter: 2004Q1

REPORT INFORMATION
  Report Type: 
  Country: None (occurrence: None)
  Receive Date: 20040316
  Receipt Date: 20040301
  Transmission Date: 20041129
  Serious: Yes (Hospitalization)
  Sender: FDA-Public Use
  Company Number: USA040360603

PATIENT
  Sex: Male

DRUGS (3)
  1. STRATTERA [Suspect]
     Indication: ATTENTION DEFICIT/HYPERACTIVITY DISORDER
     Dosage: 80 MG/ 2 DAY
     Dates: start: 20030101, end: 20040210
  2. RITALIN [Concomitant]
  3. CONCERTA [Concomitant]

REACTIONS (4)
  - AGGRESSION [None]
  - IRRITABILITY [None]
  - MOOD SWINGS [None]
  - PSYCHOTIC DISORDER [None]
